FAERS Safety Report 5561694-0 (Version None)
Quarter: 2007Q4

REPORT INFORMATION
  Report Type: 
  Country: None (occurrence: None)
  Receive Date: 20071215
  Receipt Date: 20071011
  Transmission Date: 20080405
  Serious: No
  Sender: FDA-Public Use
  Company Number: US-AMGEN-KDL247691

PATIENT
  Sex: Female

DRUGS (3)
  1. ENBREL [Suspect]
     Indication: ACUTE FEBRILE NEUTROPHILIC DERMATOSIS
     Route: 058
     Dates: start: 20060811
  2. ENBREL [Suspect]
     Indication: MYELODYSPLASTIC SYNDROME
  3. CYCLOSPORINE [Concomitant]
     Route: 048
     Dates: start: 20010101

REACTIONS (1)
  - INJECTION SITE PAIN [None]
